FAERS Safety Report 7592085-9 (Version None)
Quarter: 2011Q3

REPORT INFORMATION
  Report Type: 
  Country: None (occurrence: None)
  Receive Date: 20110706
  Receipt Date: 20110701
  Transmission Date: 20111222
  Serious: Yes (Hospitalization)
  Sender: FDA-Public Use
  Company Number: DE-SANOFI-AVENTIS-2011SA041666

PATIENT
  Age: 70 Year
  Sex: Male
  Weight: 70 kg

DRUGS (4)
  1. METHOTREXATE [Suspect]
     Route: 058
     Dates: start: 20110401, end: 20110501
  2. METHOTREXATE [Suspect]
     Route: 058
     Dates: start: 20110401, end: 20110501
  3. LEFLUNOMIDE [Suspect]
     Indication: SARCOIDOSIS
     Route: 048
     Dates: start: 20110401, end: 20110401
  4. LEFLUNOMIDE [Suspect]
     Route: 048
     Dates: start: 20110401, end: 20110401

REACTIONS (3)
  - GALLBLADDER CANCER [None]
  - CHOLESTASIS [None]
  - OFF LABEL USE [None]
